FAERS Safety Report 9049890 (Version 14)
Quarter: 2014Q3

REPORT INFORMATION
  Report Type: Spontaneous
  Country: US (occurrence: US)
  Receive Date: 20130205
  Receipt Date: 20140905
  Transmission Date: 20150326
  Serious: Yes (Hospitalization, Other)
  Sender: FDA-Public Use
  Company Number: US-PFIZER INC-2013044298

PATIENT
  Age: 67 Year
  Sex: Female
  Weight: 107.9 kg

DRUGS (22)
  1. XANAX [Concomitant]
     Active Substance: ALPRAZOLAM
     Indication: ANXIETY
     Dosage: 0.25 MG, AS NEEDED
  2. BUPROPION [Concomitant]
     Active Substance: BUPROPION
     Dosage: 150 MG, 2X/DAY
  3. LEVOTHYROXINE [Concomitant]
     Active Substance: LEVOTHYROXINE
     Dosage: 0.175 UG, UNK
  4. SUTENT [Suspect]
     Active Substance: SUNITINIB MALATE
     Dosage: 37.5 MG, DAILY
  5. DIPHENHYDRAMINE [Concomitant]
     Active Substance: DIPHENHYDRAMINE
     Indication: SLEEP DISORDER
     Dosage: UNK, DAILY AT BEDTIME
  6. METOPROLOL SUCCINATE. [Concomitant]
     Active Substance: METOPROLOL SUCCINATE
     Indication: HYPERTENSION
     Dosage: 25 MG, 2X/DAY
  7. LOPID [Concomitant]
     Active Substance: GEMFIBROZIL
     Dosage: UNK
  8. LOMOTIL [Concomitant]
     Active Substance: ATROPINE SULFATE\DIPHENOXYLATE HYDROCHLORIDE
     Dosage: UNK
  9. AMLODIPINE [Concomitant]
     Active Substance: AMLODIPINE BESYLATE
     Dosage: 5 MG, DAILY
  10. GLUCOSAMINE [Concomitant]
     Active Substance: GLUCOSAMINE
     Dosage: 2000 MG, 2X/DAY
  11. HYDROCHLOROTHIAZIDE WITH TRIAMTERENE [Concomitant]
     Active Substance: HYDROCHLOROTHIAZIDE\TRIAMTERENE
     Dosage: 37.5/25 DAILY
  12. BENADRYL [Concomitant]
     Active Substance: DIPHENHYDRAMINE HYDROCHLORIDE
     Dosage: UNK, 1X/DAY (AT BEDTIME)
  13. CINNAMON. [Concomitant]
     Active Substance: CINNAMON
     Dosage: 2000 MG, 2X/DAY
  14. SIMVASTATIN. [Concomitant]
     Active Substance: SIMVASTATIN
     Dosage: 20 MG, DAILY
  15. VITAMIN E [Concomitant]
     Active Substance: .ALPHA.-TOCOPHEROL
     Dosage: THREE TO FOUR TIMES A WEEK
  16. TRIAMTERENE. [Concomitant]
     Active Substance: TRIAMTERENE
     Dosage: UNK
  17. IMODIUM [Concomitant]
     Active Substance: LOPERAMIDE HYDROCHLORIDE
     Dosage: UNK
  18. SUTENT [Suspect]
     Active Substance: SUNITINIB MALATE
     Indication: METASTATIC RENAL CELL CARCINOMA
     Dosage: 50 MG, CYCLIC (DAILY X 28 DAYS WITH 14 OFF)
     Dates: start: 20130121, end: 20140416
  19. PLAVIX [Suspect]
     Active Substance: CLOPIDOGREL BISULFATE
     Indication: STENT PLACEMENT
     Dosage: 75 MG, DAILY
  20. LANTUS [Concomitant]
     Active Substance: INSULIN GLARGINE
     Indication: DIABETES MELLITUS
     Dosage: 30 IU, 2X/DAY
  21. WELLBUTRIN [Concomitant]
     Active Substance: BUPROPION HYDROCHLORIDE
     Dosage: UNK
  22. GLIMEPIRIDE. [Concomitant]
     Active Substance: GLIMEPIRIDE
     Indication: DIABETES MELLITUS
     Dosage: 4 MG, DAILY

REACTIONS (41)
  - Somnolence [Unknown]
  - Faeces pale [Unknown]
  - Trismus [Recovered/Resolved]
  - Dysphagia [Unknown]
  - Fluid retention [Not Recovered/Not Resolved]
  - Weight decreased [Unknown]
  - Decreased appetite [Unknown]
  - Dysgeusia [Not Recovered/Not Resolved]
  - Weight increased [Recovered/Resolved]
  - Hair colour changes [Unknown]
  - Vitamin B12 decreased [Recovering/Resolving]
  - Blood creatinine increased [Unknown]
  - Dry mouth [Unknown]
  - Tongue disorder [Unknown]
  - Wound infection staphylococcal [Recovering/Resolving]
  - Skin discolouration [Not Recovered/Not Resolved]
  - Faecal incontinence [Unknown]
  - Oedema peripheral [Not Recovered/Not Resolved]
  - Contusion [Unknown]
  - Wound [Not Recovered/Not Resolved]
  - Dehydration [Unknown]
  - Emotional disorder [Unknown]
  - Feeling abnormal [Unknown]
  - Dry skin [Not Recovered/Not Resolved]
  - Balance disorder [Not Recovered/Not Resolved]
  - Oral pain [Not Recovered/Not Resolved]
  - Diarrhoea [Recovered/Resolved]
  - Flatulence [Unknown]
  - Hypothyroidism [Unknown]
  - Dizziness [Not Recovered/Not Resolved]
  - Glossodynia [Unknown]
  - Blood urea increased [Unknown]
  - Pain [Unknown]
  - Impaired healing [Not Recovered/Not Resolved]
  - Bowel movement irregularity [Not Recovered/Not Resolved]
  - Aphagia [Unknown]
  - Fatigue [Not Recovered/Not Resolved]
  - Cough [Recovered/Resolved]
  - Alopecia [Unknown]
  - Full blood count decreased [Unknown]
  - Malaise [Unknown]

NARRATIVE: CASE EVENT DATE: 201301
